FAERS Safety Report 4619997-X (Version None)
Quarter: 2005Q1

REPORT INFORMATION
  Report Type: 
  Country: None (occurrence: None)
  Receive Date: 20050324
  Receipt Date: 20050312
  Transmission Date: 20050727
  Serious: Yes (Hospitalization, Other)
  Sender: FDA-Public Use
  Company Number: 200510386GDS

PATIENT
  Age: 77 Year
  Sex: Male

DRUGS (17)
  1. NIFEDIPINE [Suspect]
     Indication: HYPERTENSION
     Dosage: SEE IMAGE
     Route: 048
     Dates: start: 20031001, end: 20031201
  2. NIFEDIPINE [Suspect]
     Indication: HYPERTENSION
     Dosage: SEE IMAGE
     Route: 048
     Dates: start: 20031201
  3. CLARITHROMYCIN [Suspect]
     Indication: COUGH
     Dosage: 1000 MG, TOTAL DAILY, ORAL
     Route: 048
     Dates: start: 20031201
  4. CLARITHROMYCIN [Suspect]
     Indication: DYSPNOEA
     Dosage: 1000 MG, TOTAL DAILY, ORAL
     Route: 048
     Dates: start: 20031201
  5. CLARITHROMYCIN [Suspect]
     Indication: PRODUCTIVE COUGH
     Dosage: 1000 MG, TOTAL DAILY, ORAL
     Route: 048
     Dates: start: 20031201
  6. CAPTOPRIL [Concomitant]
  7. METFORMIN HCL [Concomitant]
  8. GLIBENCLAMIDE [Concomitant]
  9. ALBUTEROL [Concomitant]
  10. BUDESONIDE [Concomitant]
  11. AMLODIPINE [Concomitant]
  12. LISINOPRIL [Concomitant]
  13. HYDROCHLOROTHIAZIDE [Concomitant]
  14. DOXAZOSIN [Concomitant]
  15. QUINAPRIL HCL [Concomitant]
  16. ASPIRIN [Concomitant]
  17. FUROSEMIDE [Concomitant]

REACTIONS (20)
  - BLOOD CREATININE INCREASED [None]
  - BLOOD PRESSURE INADEQUATELY CONTROLLED [None]
  - BRADYCARDIA [None]
  - CREATININE RENAL CLEARANCE DECREASED [None]
  - CYANOSIS [None]
  - DEPRESSED LEVEL OF CONSCIOUSNESS [None]
  - DRUG EFFECT DECREASED [None]
  - DRUG INTERACTION [None]
  - DYSPNOEA [None]
  - HYPERGLYCAEMIA [None]
  - HYPERKALAEMIA [None]
  - HYPERTENSION [None]
  - HYPOCALCAEMIA [None]
  - HYPONATRAEMIA [None]
  - METABOLIC ACIDOSIS [None]
  - PRODUCTIVE COUGH [None]
  - PULSE ABSENT [None]
  - RENAL IMPAIRMENT [None]
  - SEPTIC SHOCK [None]
  - VERTEBROBASILAR INSUFFICIENCY [None]
